FAERS Safety Report 5579766-3 (Version None)
Quarter: 2008Q1

REPORT INFORMATION
  Report Type: 
  Country: None (occurrence: None)
  Receive Date: 20080102
  Receipt Date: 20071221
  Transmission Date: 20080703
  Serious: Yes (Other)
  Sender: FDA-Public Use
  Company Number: US-PFIZER INC-2007092456

PATIENT
  Sex: Male
  Weight: 88.5 kg

DRUGS (3)
  1. VIAGRA [Suspect]
     Indication: ERECTILE DYSFUNCTION
     Route: 048
  2. ZESTRIL [Concomitant]
     Indication: HYPERTENSION
  3. ANTIGLAUCOMA PREPARATIONS AND MIOTICS [Concomitant]

REACTIONS (4)
  - EYE HAEMORRHAGE [None]
  - HERNIA REPAIR [None]
  - NASAL OPERATION [None]
  - VISUAL ACUITY REDUCED [None]
